FAERS Safety Report 21032036 (Version 4)
Quarter: 2023Q4

REPORT INFORMATION
  Report Type: Spontaneous
  Country: US (occurrence: None)
  Receive Date: 20220701
  Receipt Date: 20231126
  Transmission Date: 20240110
  Serious: Yes (Other)
  Sender: FDA-Public Use
  Company Number: US-ROCHE-3126665

PATIENT
  Age: 60 Year
  Sex: Female

DRUGS (5)
  1. HERCEPTIN [Suspect]
     Active Substance: TRASTUZUMAB
     Indication: HER2 positive breast cancer
     Route: 041
     Dates: start: 20120907, end: 20121221
  2. XOLAIR [Suspect]
     Active Substance: OMALIZUMAB
     Indication: Asthma
     Dosage: 1 SHOT
     Route: 058
     Dates: start: 20190829
  3. PERJETA [Suspect]
     Active Substance: PERTUZUMAB
     Indication: HER2 positive breast cancer
     Route: 042
     Dates: start: 20120907, end: 20121221
  4. KADCYLA [Suspect]
     Active Substance: ADO-TRASTUZUMAB EMTANSINE
     Indication: HER2 positive breast cancer
     Route: 042
     Dates: start: 201706, end: 202003
  5. KADCYLA [Suspect]
     Active Substance: ADO-TRASTUZUMAB EMTANSINE
     Route: 042
     Dates: start: 202010, end: 202204

REACTIONS (13)
  - Cardiac disorder [Unknown]
  - Ejection fraction decreased [Unknown]
  - Recurrent cancer [Unknown]
  - Pulmonary oedema [Unknown]
  - Breast cancer metastatic [Unknown]
  - Salivary gland disorder [Unknown]
  - Tumour marker increased [Unknown]
  - Cognitive disorder [Unknown]
  - Fatigue [Unknown]
  - Dysarthria [Unknown]
  - Confusional state [Unknown]
  - Asthma [Unknown]
  - Metastases to central nervous system [Not Recovered/Not Resolved]

NARRATIVE: CASE EVENT DATE: 20150101
